FAERS Safety Report 17045244 (Version 1)
Quarter: 2019Q4

REPORT INFORMATION
  Report Type: Report from Study
  Country: DE (occurrence: DE)
  Receive Date: 20191118
  Receipt Date: 20191118
  Transmission Date: 20200122
  Serious: Yes (Other)
  Sender: FDA-Public Use
  Company Number: DE-MYLANLABS-2019M1110130

PATIENT
  Sex: Male
  Weight: 66.2 kg

DRUGS (7)
  1. IBUPROFEN. [Concomitant]
     Active Substance: IBUPROFEN
     Indication: JUVENILE IDIOPATHIC ARTHRITIS
     Dosage: UNK
     Route: 048
     Dates: start: 20170215, end: 20170801
  2. METHOTREXATE. [Suspect]
     Active Substance: METHOTREXATE
     Indication: JUVENILE IDIOPATHIC ARTHRITIS
     Dosage: 20 MILLIGRAM, QW
     Route: 065
     Dates: start: 20180219, end: 20180401
  3. TOCILIZUMAB. [Suspect]
     Active Substance: TOCILIZUMAB
     Dosage: 520 MILLIGRAM, 4 WEEKS
     Route: 042
     Dates: start: 20161215
  4. TOCILIZUMAB. [Suspect]
     Active Substance: TOCILIZUMAB
     Indication: JUVENILE IDIOPATHIC ARTHRITIS
     Dosage: 520 MILLIGRAM, 4 WEEKS
     Route: 042
     Dates: start: 20170215
  5. TOCILIZUMAB. [Suspect]
     Active Substance: TOCILIZUMAB
     Dosage: 520 MILLIGRAM, 4 WEEKS
     Route: 042
     Dates: start: 20161017
  6. TOCILIZUMAB. [Suspect]
     Active Substance: TOCILIZUMAB
     Indication: STILL^S DISEASE
     Dosage: 520 MILLIGRAM,4 WEEKS
     Route: 042
     Dates: start: 20160423
  7. TOCILIZUMAB. [Suspect]
     Active Substance: TOCILIZUMAB
     Dosage: 520 MILLIGRAM, 4 WEEKS
     Route: 042
     Dates: start: 20161115

REACTIONS (2)
  - Administration site reaction [Recovered/Resolved]
  - Polyarteritis nodosa [Not Recovered/Not Resolved]

NARRATIVE: CASE EVENT DATE: 20170101
